FAERS Safety Report 10571451 (Version 2)
Quarter: 2016Q2

REPORT INFORMATION
  Report Type: Spontaneous
  Country: US (occurrence: US)
  Receive Date: 20141107
  Receipt Date: 20160415
  Transmission Date: 20160815
  Serious: Yes (Hospitalization)
  Sender: FDA-Public Use
  Company Number: US-BAYER-2014-163037

PATIENT
  Age: 24 Year
  Sex: Female

DRUGS (1)
  1. MIRENA [Suspect]
     Active Substance: LEVONORGESTREL
     Indication: CONTRACEPTION
     Dosage: 20 MCG/24HR, CONT
     Route: 015
     Dates: start: 200805, end: 20120216

REACTIONS (7)
  - Uterine perforation [None]
  - Scar [None]
  - Procedural pain [None]
  - Injury [None]
  - Medical device discomfort [None]
  - Device issue [None]
  - Post-traumatic pain [None]

NARRATIVE: CASE EVENT DATE: 20120216
